FAERS Safety Report 9992452 (Version 2)
Quarter: 2014Q1

REPORT INFORMATION
  Report Type: Spontaneous
  Country: US (occurrence: US)
  Receive Date: 20140310
  Receipt Date: 20140310
  Transmission Date: 20141002
  Serious: No
  Sender: FDA-Public Use
  Company Number: US-ASTELLAS-2014US000451

PATIENT
  Age: 78 Year
  Sex: Male

DRUGS (1)
  1. XTANDI [Suspect]
     Indication: PROSTATE CANCER
     Dosage: 160 MG, ONCE DAILY
     Route: 048
     Dates: start: 20131007, end: 20131107

REACTIONS (13)
  - Rhinorrhoea [Recovering/Resolving]
  - Joint swelling [Recovering/Resolving]
  - Night sweats [Recovering/Resolving]
  - Dizziness [Recovered/Resolved]
  - Bone pain [Recovering/Resolving]
  - Myalgia [Recovering/Resolving]
  - Back pain [Not Recovered/Not Resolved]
  - Insomnia [Recovering/Resolving]
  - Arthralgia [Not Recovered/Not Resolved]
  - Fatigue [Not Recovered/Not Resolved]
  - Muscular weakness [Not Recovered/Not Resolved]
  - Headache [Recovering/Resolving]
  - Asthenia [Unknown]
